FAERS Safety Report 13653670 (Version 2)
Quarter: 2017Q3

REPORT INFORMATION
  Report Type: Spontaneous
  Country: FR (occurrence: FR)
  Receive Date: 20170614
  Receipt Date: 20170801
  Transmission Date: 20171127
  Serious: Yes (Other)
  Sender: FDA-Public Use
  Company Number: FR-BAYER-2017-110335

PATIENT
  Age: 33 Year
  Sex: Female

DRUGS (1)
  1. MIRENA [Suspect]
     Active Substance: LEVONORGESTREL
     Indication: CONTRACEPTION
     Dosage: 20 MCG/24HR, CONT
     Route: 015
     Dates: start: 20151201, end: 20170614

REACTIONS (17)
  - Pelvic pain [Recovered/Resolved]
  - Mood altered [Recovering/Resolving]
  - Headache [Recovering/Resolving]
  - Vaginal discharge [Not Recovered/Not Resolved]
  - Emotional distress [Not Recovered/Not Resolved]
  - Abdominal distension [Recovered/Resolved]
  - Amnesia [Not Recovered/Not Resolved]
  - Acne [Recovered/Resolved]
  - Tendonitis [Recovered/Resolved]
  - Alopecia [Not Recovered/Not Resolved]
  - Abnormal weight gain [Not Recovered/Not Resolved]
  - Breast pain [Recovered/Resolved]
  - Tachycardia [Recovering/Resolving]
  - Vertigo [Recovered/Resolved]
  - Fatigue [Recovered/Resolved]
  - Loss of libido [Not Recovered/Not Resolved]
  - Aggression [Not Recovered/Not Resolved]

NARRATIVE: CASE EVENT DATE: 201603
